FAERS Safety Report 10230101 (Version 1)
Quarter: 2014Q2

REPORT INFORMATION
  Report Type: Spontaneous
  Country: US (occurrence: None)
  Receive Date: 20140610
  Receipt Date: 20140610
  Transmission Date: 20141212
  Serious: No
  Sender: FDA-Public Use
  Company Number: None

PATIENT
  Age: 52 Year
  Sex: Female
  Weight: 58.97 kg

DRUGS (1)
  1. MELATONIN [Suspect]
     Indication: SLEEP PHASE RHYTHM DISTURBANCE
     Dates: start: 20140603, end: 20140606

REACTIONS (6)
  - Arthralgia [None]
  - Pain in extremity [None]
  - Muscle spasms [None]
  - Insomnia [None]
  - Eyelid oedema [None]
  - Product substitution issue [None]
